FAERS Safety Report 7730411-8 (Version None)
Quarter: 2011Q3

REPORT INFORMATION
  Report Type: 
  Country: None (occurrence: None)
  Receive Date: 20110906
  Receipt Date: 20110901
  Transmission Date: 20111222
  Serious: Yes (Hospitalization, Other)
  Sender: FDA-Public Use
  Company Number: US-BAYER-US-2006-010982

PATIENT
  Age: 56 Year
  Sex: Female
  Weight: 78 kg

DRUGS (8)
  1. DIGOXIN [Concomitant]
     Dosage: .125 MG, 1X/DAY
     Route: 048
     Dates: end: 20060512
  2. METHYLTESTOSTERONE, ESTROGENS ESTERIFIED [Concomitant]
     Indication: HORMONE REPLACEMENT THERAPY
     Dosage: 1 TAB(S), BED T. [DAILY DOSE: 1 TAB(S)]
     Route: 048
  3. BETASERON [Suspect]
     Dosage: UNK
     Dates: start: 20050517, end: 20100401
  4. PROPAFENONE HYDROCHLORIDE [Concomitant]
     Dosage: 225 MG, 2X/DAY
     Route: 048
     Dates: start: 20060512
  5. BETASERON [Suspect]
     Indication: RELAPSING-REMITTING MULTIPLE SCLEROSIS
     Dosage: 8 MIU, EVERY 2D
     Route: 058
     Dates: start: 20050308, end: 20050428
  6. CALCIUM CARBONATE [Concomitant]
  7. ACETYLSALICYLIC ACID SRT [Concomitant]
     Indication: PROPHYLAXIS
     Dosage: 81 MG, 1X/DAY
     Route: 048
  8. CETIRIZINE HYDROCHLORIDE [Concomitant]
     Indication: SEASONAL ALLERGY
     Dosage: 10 MG, 1X/DAY

REACTIONS (4)
  - ATRIAL FLUTTER [None]
  - BREAST CANCER FEMALE [None]
  - ATRIAL FIBRILLATION [None]
  - SKIN INFECTION [None]
